FAERS Safety Report 15504511 (Version 2)
Quarter: 2018Q4

REPORT INFORMATION
  Report Type: Spontaneous
  Country: FR (occurrence: FR)
  Receive Date: 20181016
  Receipt Date: 20181227
  Transmission Date: 20190205
  Serious: Yes (Hospitalization)
  Sender: FDA-Public Use
  Company Number: FR-SA-2018SA277766

PATIENT
  Age: 81 Year
  Sex: Male
  Weight: 88 kg

DRUGS (5)
  1. STIVARGA [Interacting]
     Active Substance: REGORAFENIB
     Indication: HEPATOCELLULAR CARCINOMA
     Dosage: 1 DF, QD
     Route: 048
     Dates: start: 201802, end: 20180903
  2. HEPARIN SODIUM. [Interacting]
     Active Substance: HEPARIN SODIUM
     Indication: ANGIOPLASTY
     Dosage: 6000 IU, QD
     Route: 041
     Dates: start: 20180828, end: 20180828
  3. LOVENOX [Suspect]
     Active Substance: ENOXAPARIN SODIUM
     Indication: ACUTE CORONARY SYNDROME
     Dosage: 14000 IU, QD
     Route: 058
     Dates: start: 20180823, end: 20180828
  4. BRILIQUE [Interacting]
     Active Substance: TICAGRELOR
     Indication: ACUTE CORONARY SYNDROME
     Dosage: 1 DF, QD
     Route: 048
     Dates: start: 20180823
  5. KARDEGIC [Interacting]
     Active Substance: ASPIRIN DL-LYSINE
     Indication: CARDIOVASCULAR INSUFFICIENCY
     Dosage: 1 DF, QD
     Route: 048

REACTIONS (2)
  - Pericardial haemorrhage [Recovering/Resolving]
  - Drug interaction [Unknown]

NARRATIVE: CASE EVENT DATE: 20180828
